FAERS Safety Report 16403204 (Version 1)
Quarter: 2019Q2

REPORT INFORMATION
  Report Type: Spontaneous
  Country: US (occurrence: US)
  Receive Date: 20190501
  Receipt Date: 20190501
  Transmission Date: 20190711
  Serious: No
  Sender: FDA-Public Use
  Company Number: None

PATIENT
  Age: 54 Year
  Sex: Female
  Weight: 52.16 kg

DRUGS (2)
  1. METHOTREXATE 50 MG/2 ML SDV [Suspect]
     Active Substance: METHOTREXATE
     Indication: CROHN^S DISEASE
     Route: 058
     Dates: start: 201808
  2. METHOTREXATE 50 MG/2 ML SDV [Suspect]
     Active Substance: METHOTREXATE
     Indication: CROHN^S DISEASE

REACTIONS (4)
  - Emergency care [None]
  - Weight gain poor [None]
  - Hypophagia [None]
  - Product dose omission [None]
